FAERS Safety Report 11424258 (Version 1)
Quarter: 2015Q3

REPORT INFORMATION
  Report Type: Spontaneous
  Country: FR (occurrence: FR)
  Receive Date: 20150827
  Receipt Date: 20150827
  Transmission Date: 20151125
  Serious: Yes (Death, Hospitalization)
  Sender: FDA-Public Use
  Company Number: FR-ASTRAZENECA-2015SE81169

PATIENT
  Age: 30829 Day
  Sex: Male

DRUGS (10)
  1. CRESTOR [Suspect]
     Active Substance: ROSUVASTATIN CALCIUM
     Route: 048
  2. BISOPROLOL [Suspect]
     Active Substance: BISOPROLOL
     Route: 048
  3. BISOPROLOL [Suspect]
     Active Substance: BISOPROLOL
     Dosage: SUPPOSED DOSE: 75 MG ONCE ADMINISTRATION
     Route: 048
     Dates: start: 20150708
  4. CORDARONE [Suspect]
     Active Substance: AMIODARONE HYDROCHLORIDE
     Route: 048
  5. CORDARONE [Suspect]
     Active Substance: AMIODARONE HYDROCHLORIDE
     Dosage: SUPPOSED DOSE: 2 G ONCE ADMINISTRATION
     Route: 048
     Dates: start: 20150708
  6. PREVISCAN [Suspect]
     Active Substance: FLUINDIONE
     Route: 048
  7. CRESTOR [Suspect]
     Active Substance: ROSUVASTATIN CALCIUM
     Dosage: SUPPOSED DOSE: 400 MG ONCE ADMINISTRATION
     Route: 048
     Dates: start: 20150708
  8. AMLOR [Suspect]
     Active Substance: AMLODIPINE BESYLATE
     Dosage: 5 MG UNKNOWN, NON AZ PRODUCT
     Route: 048
  9. AMLOR [Suspect]
     Active Substance: AMLODIPINE BESYLATE
     Dosage: SUPPOSED DOSE: 30 MG ONCE ADMINISTRATION, NON AZ PRODUCT
     Route: 048
     Dates: start: 20150708
  10. PREVISCAN [Suspect]
     Active Substance: FLUINDIONE
     Dosage: SUPPOSED DOSE: 600 MG ONCE ADMINISTRATION
     Route: 048
     Dates: start: 20150708

REACTIONS (5)
  - Myoclonus [Recovered/Resolved]
  - Bradycardia [Fatal]
  - Circulatory collapse [Fatal]
  - Hypotension [Fatal]
  - Completed suicide [Fatal]

NARRATIVE: CASE EVENT DATE: 20150708
